FAERS Safety Report 18686390 (Version 1)
Quarter: 2020Q4

REPORT INFORMATION
  Report Type: Report from Study
  Country: US (occurrence: US)
  Receive Date: 20201231
  Receipt Date: 20201231
  Transmission Date: 20210114
  Serious: No
  Sender: FDA-Public Use
  Company Number: US-ACADIA PHARMACEUTICALS INC.-ACA-2020-PIM-003971

PATIENT
  Sex: Male

DRUGS (1)
  1. NUPLAZID [Suspect]
     Active Substance: PIMAVANSERIN TARTRATE
     Indication: PARKINSON^S DISEASE
     Dosage: 34 MILLIGRAM, QD
     Route: 048

REACTIONS (9)
  - Delirium [Unknown]
  - Paranoia [Unknown]
  - Gait disturbance [Unknown]
  - Musculoskeletal stiffness [Unknown]
  - Resting tremor [Unknown]
  - Memory impairment [Unknown]
  - Delusion [Unknown]
  - Flat affect [Unknown]
  - Personality change [Unknown]
